FAERS Safety Report 15776551 (Version 1)
Quarter: 2018Q4

REPORT INFORMATION
  Report Type: Spontaneous
  Country: GB (occurrence: GB)
  Receive Date: 20181231
  Receipt Date: 20181231
  Transmission Date: 20190205
  Serious: Yes (Hospitalization, Other)
  Sender: FDA-Public Use
  Company Number: GB-PFIZER INC-2007095504

PATIENT
  Age: 47 Year
  Sex: Male

DRUGS (5)
  1. IDARUBICIN HCL [Suspect]
     Active Substance: IDARUBICIN HYDROCHLORIDE
     Indication: ACUTE MYELOMONOCYTIC LEUKAEMIA
     Dosage: UNK
  2. ALLOPURINOL. [Concomitant]
     Active Substance: ALLOPURINOL
     Indication: TUMOUR LYSIS SYNDROME
     Dosage: UNK
  3. FLUDARABINE [Suspect]
     Active Substance: FLUDARABINE PHOSPHATE
     Indication: ACUTE MYELOMONOCYTIC LEUKAEMIA
     Dosage: UNK
  4. CYTARABINE. [Suspect]
     Active Substance: CYTARABINE
     Indication: ACUTE MYELOMONOCYTIC LEUKAEMIA
     Dosage: UNK
  5. RASBURICASE [Concomitant]
     Active Substance: RASBURICASE
     Indication: TUMOUR LYSIS SYNDROME
     Dosage: UNK

REACTIONS (2)
  - Acute kidney injury [Recovered/Resolved]
  - Tumour lysis syndrome [Recovered/Resolved]
